FAERS Safety Report 8455960-9 (Version None)
Quarter: 2012Q2

REPORT INFORMATION
  Report Type: 
  Country: None (occurrence: None)
  Receive Date: 20120621
  Receipt Date: 20120613
  Transmission Date: 20120825
  Serious: Yes (Other)
  Sender: FDA-Public Use
  Company Number: US-BAYER-2012-014607

PATIENT
  Age: 19 Year
  Sex: Female
  Weight: 86.168 kg

DRUGS (2)
  1. IBUPROFEN [Concomitant]
     Dosage: UNK
     Dates: start: 20050101
  2. YAZ [Suspect]
     Dosage: UNK
     Dates: start: 20080422, end: 20090401

REACTIONS (5)
  - DYSPNOEA [None]
  - FEAR OF DISEASE [None]
  - CHOLELITHIASIS [None]
  - PAIN [None]
  - CHEST PAIN [None]
